FAERS Safety Report 6810704-9 (Version None)
Quarter: 2010Q2

REPORT INFORMATION
  Report Type: 
  Country: None (occurrence: None)
  Receive Date: 20100630
  Receipt Date: 20070905
  Transmission Date: 20101027
  Serious: No
  Sender: FDA-Public Use
  Company Number: US-PFIZER INC-2007065957

PATIENT
  Sex: Female

DRUGS (3)
  1. ESTRING [Suspect]
  2. DEPO-TESTOSTERONE [Suspect]
  3. CLIMARA [Suspect]

REACTIONS (3)
  - BLOOD TESTOSTERONE DECREASED [None]
  - BREAST MASS [None]
  - PROGESTERONE INCREASED [None]
